FAERS Safety Report 7563930-8 (Version None)
Quarter: 2011Q2

REPORT INFORMATION
  Report Type: 
  Country: None (occurrence: None)
  Receive Date: 20110622
  Receipt Date: 20110614
  Transmission Date: 20111010
  Serious: Yes (Hospitalization)
  Sender: FDA-Public Use
  Company Number: JP-UCBSA-034483

PATIENT
  Sex: Female
  Weight: 9.58 kg

DRUGS (7)
  1. KEPPRA [Suspect]
     Route: 048
     Dates: start: 20110429, end: 20110101
  2. MYSTAN [Concomitant]
     Indication: MYOCLONIC EPILEPSY
     Route: 048
     Dates: start: 20110228
  3. KEPPRA [Suspect]
     Route: 048
     Dates: start: 20110509
  4. VALPROATE SODIUM [Suspect]
     Indication: MYOCLONIC EPILEPSY
     Route: 048
     Dates: start: 20100223
  5. KEPPRA [Suspect]
     Indication: MYOCLONIC EPILEPSY
     Route: 048
     Dates: start: 20110427, end: 20110401
  6. VALPROATE SODIUM [Suspect]
     Route: 048
     Dates: start: 20110228, end: 20110601
  7. MYSTAN [Concomitant]
     Route: 048
     Dates: start: 20110409

REACTIONS (3)
  - CONVULSION [None]
  - PLATELET COUNT DECREASED [None]
  - PYREXIA [None]
